FAERS Safety Report 6380639-7 (Version None)
Quarter: 2009Q3

REPORT INFORMATION
  Report Type: 
  Country: None (occurrence: None)
  Receive Date: 20090929
  Receipt Date: 20090921
  Transmission Date: 20100115
  Serious: Yes (Hospitalization)
  Sender: FDA-Public Use
  Company Number: IT-ASTRAZENECA-2009SE14224

PATIENT
  Age: 55 Year
  Sex: Female

DRUGS (1)
  1. ANASTROZOLE [Suspect]

REACTIONS (1)
  - HENOCH-SCHONLEIN PURPURA [None]
